FAERS Safety Report 15310646 (Version 1)
Quarter: 2018Q3

REPORT INFORMATION
  Report Type: Report from Study
  Country: MX (occurrence: MX)
  Receive Date: 20180823
  Receipt Date: 20180823
  Transmission Date: 20181010
  Serious: Yes (Death)
  Sender: FDA-Public Use
  Company Number: PHHY2018MX076825

PATIENT
  Sex: Male
  Weight: 67 kg

DRUGS (2)
  1. GLIVEC [Suspect]
     Active Substance: IMATINIB MESYLATE
     Indication: PRODUCT USED FOR UNKNOWN INDICATION
     Dosage: 400 MG, Q12H
     Route: 048
     Dates: start: 20180505
  2. GLIVEC [Suspect]
     Active Substance: IMATINIB MESYLATE
     Dosage: 200 MG, Q12H (400 MG EVERY 24 HOURS)
     Route: 048

REACTIONS (5)
  - Pyrexia [Fatal]
  - Septic shock [Fatal]
  - Rales [Fatal]
  - Ill-defined disorder [Fatal]
  - Wheezing [Fatal]
